FAERS Safety Report 7373638-X (Version None)
Quarter: 2011Q1

REPORT INFORMATION
  Report Type: 
  Country: None (occurrence: None)
  Receive Date: 20110325
  Receipt Date: 20110204
  Transmission Date: 20110831
  Serious: Yes (Hospitalization, Other)
  Sender: FDA-Public Use
  Company Number: US-BAYER-201035973NA

PATIENT
  Sex: Female

DRUGS (11)
  1. EFFEXOR [Concomitant]
  2. VALIUM [Concomitant]
  3. YASMIN [Suspect]
     Indication: PRODUCT USED FOR UNKNOWN INDICATION
     Dosage: UNK
     Route: 048
     Dates: start: 20061019, end: 20070511
  4. GLUCOPHAGE [Concomitant]
  5. DILAUDID [Concomitant]
     Indication: PAIN
  6. YAZ [Suspect]
     Indication: PRODUCT USED FOR UNKNOWN INDICATION
     Route: 048
     Dates: start: 20061019, end: 20070501
  7. PHENERGAN [Concomitant]
     Indication: NAUSEA
  8. LAMICTAL [Concomitant]
  9. FLEXERIL [Concomitant]
  10. IBUPROFEN [Concomitant]
  11. LORTAB [Concomitant]

REACTIONS (2)
  - DEEP VEIN THROMBOSIS [None]
  - PULMONARY EMBOLISM [None]
